FAERS Safety Report 15924037 (Version 3)
Quarter: 2019Q1

REPORT INFORMATION
  Report Type: Spontaneous
  Country: US (occurrence: US)
  Receive Date: 20190206
  Receipt Date: 20190227
  Transmission Date: 20190417
  Serious: Yes (Hospitalization, Other)
  Sender: FDA-Public Use
  Company Number: US-GLAXOSMITHKLINE-US2019GSK020437

PATIENT
  Sex: Female
  Weight: 117.28 kg

DRUGS (7)
  1. OPSUMIT [Concomitant]
     Active Substance: MACITENTAN
  2. FLOLAN [Suspect]
     Active Substance: EPOPROSTENOL SODIUM
     Dosage: 47 DF, CO
     Route: 042
     Dates: start: 20160830
  3. REVATIO [Concomitant]
     Active Substance: SILDENAFIL CITRATE
  4. FLOLAN [Suspect]
     Active Substance: EPOPROSTENOL SODIUM
     Dosage: 42 DF, CO
  5. FLOLAN [Suspect]
     Active Substance: EPOPROSTENOL SODIUM
     Indication: PULMONARY ARTERIAL HYPERTENSION
     Dosage: 47 DF, CO
     Dates: start: 20070419
  6. FLOLAN DILUENT PH 12 [Suspect]
     Active Substance: GLYCINE\MANNITOL\SODIUM CHLORIDE
     Indication: PULMONARY ARTERIAL HYPERTENSION
     Dosage: UNK
     Dates: start: 20160830
  7. ELIQUIS [Suspect]
     Active Substance: APIXABAN
     Indication: PRODUCT USED FOR UNKNOWN INDICATION

REACTIONS (5)
  - Hospitalisation [Unknown]
  - Hypoxia [Unknown]
  - Ventilation perfusion mismatch [Unknown]
  - Anaemia [Unknown]
  - Haemorrhage [Unknown]
